FAERS Safety Report 7946478-8 (Version None)
Quarter: 2011Q4

REPORT INFORMATION
  Report Type: 
  Country: None (occurrence: None)
  Receive Date: 20111129
  Receipt Date: 20111123
  Transmission Date: 20120403
  Serious: Yes (Hospitalization)
  Sender: FDA-Public Use
  Company Number: US-ALEXION-A201101689

PATIENT
  Sex: Female

DRUGS (2)
  1. SOLIRIS [Suspect]
     Indication: PAROXYSMAL NOCTURNAL HAEMOGLOBINURIA
     Dosage: 900 MG UNK
     Route: 042
  2. PNEUMOCOCCAL VACCINE [Concomitant]
     Indication: IMMUNISATION
     Dosage: UNK
     Dates: start: 20080521, end: 20080521

REACTIONS (2)
  - CHOLECYSTITIS [None]
  - CHOLELITHIASIS [None]
